FAERS Safety Report 12620846 (Version 1)
Quarter: 2016Q3

REPORT INFORMATION
  Report Type: Report from Study
  Country: US (occurrence: US)
  Receive Date: 20160804
  Receipt Date: 20160804
  Transmission Date: 20161109
  Serious: Yes (Hospitalization, Other)
  Sender: FDA-Public Use
  Company Number: US-ROCHE-1007379

PATIENT
  Age: 79 Year
  Sex: Female
  Weight: 60 kg

DRUGS (6)
  1. ERLOTINIB [Suspect]
     Active Substance: ERLOTINIB
     Indication: ADENOCARCINOMA PANCREAS
     Dosage: QD, TOTAL DOSE ADMINISTERED:525 MG
     Route: 048
     Dates: start: 20110728, end: 20110803
  2. GEMCITABINE [Suspect]
     Active Substance: GEMCITABINE\GEMCITABINE HYDROCHLORIDE
     Indication: ADENOCARCINOMA PANCREAS
     Dosage: TOTAL DOSE ADMINISTERED: 1000 MG. OVER 30 MIN ON DAYS 1, 8, 15, 22, 29, 36,AND 43
     Route: 042
     Dates: start: 20110728, end: 20110728
  3. CREON [Concomitant]
     Active Substance: PANCRELIPASE AMYLASE\PANCRELIPASE LIPASE\PANCRELIPASE PROTEASE
  4. VISMODEGIB [Suspect]
     Active Substance: VISMODEGIB
     Indication: ADENOCARCINOMA PANCREAS
     Dosage: QD, TOTAL DOSE ADMINISTERED:1050 MG
     Route: 048
     Dates: start: 20110728, end: 20110803
  5. ATIVAN [Concomitant]
     Active Substance: LORAZEPAM
  6. LOVENOX [Concomitant]
     Active Substance: ENOXAPARIN SODIUM

REACTIONS (3)
  - White blood cell count decreased [Recovered/Resolved]
  - Abdominal pain [Recovered/Resolved]
  - Neutrophil count decreased [Recovered/Resolved]

NARRATIVE: CASE EVENT DATE: 20110803
